FAERS Safety Report 14037810 (Version 2)
Quarter: 2017Q4

REPORT INFORMATION
  Report Type: Report from Study
  Country: MX (occurrence: MX)
  Receive Date: 20171004
  Receipt Date: 20171024
  Transmission Date: 20180321
  Serious: Yes (Other)
  Sender: FDA-Public Use
  Company Number: PHHY2017MX143794

PATIENT
  Sex: Female
  Weight: 80 kg

DRUGS (2)
  1. TRILEPTAL [Suspect]
     Active Substance: OXCARBAZEPINE
     Dosage: 2 DF, Q12H
     Route: 048
     Dates: start: 2016
  2. TRILEPTAL [Suspect]
     Active Substance: OXCARBAZEPINE
     Indication: EPILEPSY
     Dosage: 1 DF, Q12H
     Route: 048
     Dates: start: 2008

REACTIONS (7)
  - Generalised oedema [Recovered/Resolved]
  - Weight increased [Not Recovered/Not Resolved]
  - Gastritis [Not Recovered/Not Resolved]
  - Epilepsy [Recovered/Resolved]
  - Maternal exposure during pregnancy [Recovered/Resolved]
  - Anxiety [Not Recovered/Not Resolved]
  - Epilepsy [Recovered/Resolved]

NARRATIVE: CASE EVENT DATE: 2008
